FAERS Safety Report 8211423-7 (Version None)
Quarter: 2012Q1

REPORT INFORMATION
  Report Type: 
  Country: None (occurrence: None)
  Receive Date: 20120315
  Receipt Date: 20120309
  Transmission Date: 20120608
  Serious: Yes (Other)
  Sender: FDA-Public Use
  Company Number: US-PFIZER INC-HQWYE958231OCT06

PATIENT
  Sex: Female
  Weight: 68 kg

DRUGS (5)
  1. ACETAMINOPHEN AND HYDROCODONE BITARTRATE [Concomitant]
     Indication: PAIN
     Dosage: UNK
     Dates: start: 20030601, end: 20060801
  2. AMITRIPTYLINE [Concomitant]
     Indication: DEPRESSION
  3. AMBIEN [Concomitant]
     Indication: INSOMNIA
     Dosage: UNK
     Dates: start: 20020701, end: 20080401
  4. PREMARIN [Suspect]
     Indication: HORMONE REPLACEMENT THERAPY
     Dosage: UNK
     Route: 048
     Dates: start: 19840101, end: 20041101
  5. AMITRIPTYLINE [Concomitant]
     Indication: ANXIETY
     Dosage: UNK
     Dates: start: 20020701, end: 20090101

REACTIONS (3)
  - OVARIAN CANCER [None]
  - ANXIETY [None]
  - DEPRESSION [None]
